FAERS Safety Report 4531718-8 (Version None)
Quarter: 2004Q4

REPORT INFORMATION
  Report Type: 
  Country: None (occurrence: None)
  Receive Date: 20041216
  Receipt Date: 20041130
  Transmission Date: 20050328
  Serious: Yes (Other)
  Sender: FDA-Public Use
  Company Number: USA041184824

PATIENT
  Age: 57 Year
  Sex: Male
  Weight: 113 kg

DRUGS (3)
  1. HUMALOG [Suspect]
     Dosage: 63 U DAY
     Dates: start: 20000101
  2. LANTUS [Concomitant]
  3. GEMFIBROZIL [Concomitant]

REACTIONS (10)
  - ARTHRALGIA [None]
  - BLOOD GLUCOSE INCREASED [None]
  - BLOOD TRIGLYCERIDES INCREASED [None]
  - CONDITION AGGRAVATED [None]
  - INTERVERTEBRAL DISC DISORDER [None]
  - NERVE COMPRESSION [None]
  - PAIN IN EXTREMITY [None]
  - PHARMACEUTICAL PRODUCT COMPLAINT [None]
  - PROCTITIS [None]
  - WEIGHT DECREASED [None]
